FAERS Safety Report 12694168 (Version 2)
Quarter: 2016Q3

REPORT INFORMATION
  Report Type: Spontaneous
  Country: US (occurrence: US)
  Receive Date: 20160829
  Receipt Date: 20160929
  Transmission Date: 20161109
  Serious: No
  Sender: FDA-Public Use
  Company Number: US-PFIZER INC-2016402916

PATIENT
  Age: 68 Year
  Sex: Female

DRUGS (1)
  1. XELJANZ XR [Suspect]
     Active Substance: TOFACITINIB CITRATE
     Indication: RHEUMATOID ARTHRITIS
     Dosage: 11 MG, DAILY

REACTIONS (7)
  - Blood test abnormal [Unknown]
  - Diarrhoea [Unknown]
  - Dizziness [Unknown]
  - Gastric disorder [Unknown]
  - Pain [Unknown]
  - Condition aggravated [Unknown]
  - Vomiting [Unknown]
